FAERS Safety Report 15166633 (Version 1)
Quarter: 2018Q3

REPORT INFORMATION
  Report Type: Spontaneous
  Country: AU (occurrence: AU)
  Receive Date: 20180719
  Receipt Date: 20180719
  Transmission Date: 20181010
  Serious: Yes (Other)
  Sender: FDA-Public Use
  Company Number: PHHY2018AU043488

PATIENT
  Age: 84 Year
  Sex: Female

DRUGS (3)
  1. ACICLOVIR [Suspect]
     Active Substance: ACYCLOVIR
     Indication: VARICELLA ZOSTER VIRUS INFECTION
     Dosage: 500 MG, Q8H
     Route: 042
  2. ACICLOVIR [Suspect]
     Active Substance: ACYCLOVIR
     Dosage: 500 MG, FIVE DAILY
     Route: 065
  3. ACICLOVIR [Suspect]
     Active Substance: ACYCLOVIR
     Indication: LUMBOSACRAL PLEXOPATHY
     Dosage: 500 MG, Q8H
     Route: 048

REACTIONS (3)
  - Product use in unapproved indication [Unknown]
  - Nephropathy [Recovered/Resolved]
  - Acute kidney injury [Recovered/Resolved]
